FAERS Safety Report 8824889 (Version 3)
Quarter: 2013Q1

REPORT INFORMATION
  Report Type: Spontaneous
  Country: US (occurrence: US)
  Receive Date: 20121004
  Receipt Date: 20130322
  Transmission Date: 20140127
  Serious: No
  Sender: FDA-Public Use
  Company Number: US-009507513-1209USA000175

PATIENT
  Sex: Female

DRUGS (5)
  1. PEG-INTRON [Suspect]
     Indication: HEPATITIS C VIRUS TEST POSITIVE
     Dosage: UNK
     Dates: start: 20120702
  2. RIBAVIRIN [Suspect]
     Dosage: 1400 MG, QD
     Dates: start: 20120702
  3. RIBAVIRIN [Suspect]
     Dosage: 1200 MG, QD
     Dates: start: 2012
  4. RIBAVIRIN [Suspect]
     Dosage: DOSE DECREASED FROM 5 TO 4 PILLS A DAY
  5. TELAPREVIR [Suspect]
     Indication: HEPATITIS C VIRUS TEST POSITIVE
     Dosage: UNK
     Dates: start: 20120703, end: 20120924

REACTIONS (10)
  - Formication [Unknown]
  - Injection site erythema [Unknown]
  - White blood cell count decreased [Unknown]
  - Platelet count decreased [Unknown]
  - Dyspnoea [Unknown]
  - Haemoglobin decreased [Unknown]
  - Pruritus [Unknown]
  - Anaemia [Unknown]
  - Dyspnoea [Not Recovered/Not Resolved]
  - Haemoglobin decreased [Unknown]
